FAERS Safety Report 23807376 (Version 1)
Quarter: 2024Q2

REPORT INFORMATION
  Report Type: Spontaneous
  Country: US (occurrence: US)
  Receive Date: 20240502
  Receipt Date: 20240502
  Transmission Date: 20240716
  Serious: Yes (Other)
  Sender: FDA-Public Use
  Company Number: US-MYLANLABS-2024M1038686

PATIENT
  Age: 4 Decade
  Sex: Male

DRUGS (11)
  1. PREDNISONE [Suspect]
     Active Substance: PREDNISONE
     Indication: Hepatitis
     Dosage: UNK
     Route: 065
  2. CARBOPLATIN [Suspect]
     Active Substance: CARBOPLATIN
     Indication: Metastases to meninges
     Dosage: UNK
     Route: 065
  3. PACLITAXEL [Suspect]
     Active Substance: PACLITAXEL
     Indication: Metastases to meninges
     Dosage: UNK
     Route: 065
  4. TRAMETINIB [Suspect]
     Active Substance: TRAMETINIB
     Indication: Metastases to meninges
     Dosage: UNK
     Route: 065
  5. RELATLIMAB [Suspect]
     Active Substance: RELATLIMAB
     Indication: Metastases to meninges
     Dosage: UNK
     Route: 065
  6. ALDESLEUKIN [Suspect]
     Active Substance: ALDESLEUKIN
     Indication: Metastases to meninges
     Dosage: UNK
     Route: 037
  7. DABRAFENIB [Suspect]
     Active Substance: DABRAFENIB
     Indication: Metastases to meninges
     Dosage: UNK
     Route: 065
  8. MYCOPHENOLATE MOFETIL [Concomitant]
     Active Substance: MYCOPHENOLATE MOFETIL
     Indication: Hepatitis
     Dosage: UNK
     Route: 065
  9. IPILIMUMAB [Concomitant]
     Active Substance: IPILIMUMAB
     Indication: Metastatic malignant melanoma
     Dosage: UNK
     Route: 065
  10. NIVOLUMAB [Concomitant]
     Active Substance: NIVOLUMAB
     Indication: Metastatic malignant melanoma
     Dosage: UNK
     Route: 065
  11. NIVOLUMAB [Concomitant]
     Active Substance: NIVOLUMAB
     Dosage: UNK, TREATMENT STOPPED THEN RESTARTED AND THEN AGAIN STOPPED
     Route: 065

REACTIONS (2)
  - Drug ineffective [Unknown]
  - Disease progression [Unknown]
